FAERS Safety Report 9160270 (Version 3)
Quarter: 2013Q2

REPORT INFORMATION
  Report Type: Report from Study
  Country: MX (occurrence: MX)
  Receive Date: 20130313
  Receipt Date: 20130403
  Transmission Date: 20140414
  Serious: Yes (Other)
  Sender: FDA-Public Use
  Company Number: MX-ROCHE-1201211

PATIENT
  Age: 82 Year
  Sex: Female
  Weight: 50 kg

DRUGS (3)
  1. XELODA [Suspect]
     Indication: COLORECTAL CANCER
     Route: 048
     Dates: start: 20120412, end: 20130312
  2. LOSARTAN [Concomitant]
     Indication: HYPERTENSION
  3. ROFUCAL [Concomitant]
     Indication: HYPERTENSION

REACTIONS (6)
  - Hypotension [Not Recovered/Not Resolved]
  - Proctalgia [Recovering/Resolving]
  - Vomiting [Not Recovered/Not Resolved]
  - Tumour marker increased [Unknown]
  - Diarrhoea [Not Recovered/Not Resolved]
  - Urinary tract infection [Not Recovered/Not Resolved]
